FAERS Safety Report 20089347 (Version 2)
Quarter: 2022Q1

REPORT INFORMATION
  Report Type: Spontaneous
  Country: FR (occurrence: FR)
  Receive Date: 20211119
  Receipt Date: 20220104
  Transmission Date: 20220424
  Serious: No
  Sender: FDA-Public Use
  Company Number: FR-JNJFOC-20211104743

PATIENT
  Sex: Male

DRUGS (1)
  1. TREMFYA [Suspect]
     Active Substance: GUSELKUMAB
     Indication: Product used for unknown indication
     Route: 065

REACTIONS (4)
  - Device leakage [Unknown]
  - Product dose omission issue [Unknown]
  - Injection site haemorrhage [Unknown]
  - Accidental exposure to product [Unknown]
